FAERS Safety Report 10419477 (Version 3)
Quarter: 2014Q4

REPORT INFORMATION
  Report Type: Report from Study
  Country: DE (occurrence: DE)
  Receive Date: 20140829
  Receipt Date: 20141003
  Transmission Date: 20150528
  Serious: Yes (Hospitalization)
  Sender: FDA-Public Use
  Company Number: DE-PFIZER INC-2014230985

PATIENT
  Age: 74 Year
  Sex: Male
  Weight: 90 kg

DRUGS (3)
  1. TEMSIROLIMUS [Suspect]
     Active Substance: TEMSIROLIMUS
     Dosage: 50 MG, UNK
     Dates: start: 20140613, end: 20140725
  2. RITUXIMAB [Suspect]
     Active Substance: RITUXIMAB
     Dosage: 746.25 MG, UNK
     Dates: start: 20140612, end: 20140709
  3. BENDAMUSTINE [Suspect]
     Active Substance: BENDAMUSTINE
     Dosage: 179.10 MG, UNK
     Dates: start: 20140612, end: 20140711

REACTIONS (1)
  - Lung infection [Recovered/Resolved]

NARRATIVE: CASE EVENT DATE: 20140807
